FAERS Safety Report 8860929 (Version 1)
Quarter: 2012Q4

REPORT INFORMATION
  Report Type: 
  Country: FR (occurrence: FR)
  Receive Date: 20121025
  Receipt Date: 20121025
  Transmission Date: 20130627
  Serious: Yes (Life-Threatening, Hospitalization)
  Sender: FDA-Public Use
  Company Number: PHHY2012FR094033

PATIENT
  Age: 57 Year
  Sex: Female
  Weight: 45 kg

DRUGS (4)
  1. AFINITOR [Suspect]
     Indication: NEUROENDOCRINE TUMOUR
     Dosage: 10 mg, per day
     Route: 048
     Dates: start: 20110921
  2. PROGLICEM [Suspect]
     Indication: HYPOGLYCAEMIA
     Dosage: 200 mg, daily
     Dates: start: 20111008
  3. INNOHEP [Suspect]
     Indication: PULMONARY EMBOLISM
     Dosage: 0.5 ml, daily
     Route: 058
     Dates: start: 20120601
  4. AMLODIPINE [Suspect]
     Indication: HYPERTENSION
     Dosage: 10 mg, daily
     Route: 048
     Dates: start: 20111214

REACTIONS (5)
  - Renal impairment [Recovering/Resolving]
  - Blood urea increased [Recovering/Resolving]
  - Hypercreatininaemia [Recovering/Resolving]
  - Asthenia [Unknown]
  - Gait disturbance [Unknown]
